FAERS Safety Report 8347779 (Version 7)
Quarter: 2019Q1

REPORT INFORMATION
  Report Type: Spontaneous
  Country: HR (occurrence: HR)
  Receive Date: 20120122
  Receipt Date: 20190205
  Transmission Date: 20190418
  Serious: Yes (Hospitalization, Other)
  Sender: FDA-Public Use
  Company Number: PHHY2011HR79915

PATIENT
  Age: 31 Year
  Sex: Female

DRUGS (42)
  1. ESOMEPRAZOLE. [Suspect]
     Active Substance: ESOMEPRAZOLE MAGNESIUM
     Indication: ASTHENIA
     Dosage: 20 MG, BID
     Route: 065
     Dates: start: 201003
  2. SERTRALINE [Suspect]
     Active Substance: SERTRALINE HYDROCHLORIDE
     Dosage: 1 DF, UNK
     Route: 065
  3. PIROXICAM. [Suspect]
     Active Substance: PIROXICAM
     Indication: PAIN
  4. TRAMADOL+PARACETAMOL [Suspect]
     Active Substance: ACETAMINOPHEN\TRAMADOL
     Indication: PAIN
     Dosage: 2 DF, TID (TRAMADOL 37.5MG/PARACETAMOL 325MG)
     Route: 065
     Dates: start: 200709
  5. FEXOFENADINE [Suspect]
     Active Substance: FEXOFENADINE\FEXOFENADINE HYDROCHLORIDE
     Indication: HEADACHE
     Dosage: 180 MG, UNK
     Route: 065
  6. GABAPENTIN. [Suspect]
     Active Substance: GABAPENTIN
     Dosage: 300 MG, DAILY
     Route: 065
     Dates: start: 200904
  7. SERTRALINE [Suspect]
     Active Substance: SERTRALINE HYDROCHLORIDE
     Indication: PAIN
     Dosage: 50 MG, QD
     Route: 065
     Dates: start: 200904
  8. ALPRAZOLAM. [Concomitant]
     Active Substance: ALPRAZOLAM
     Indication: PERSISTENT DEPRESSIVE DISORDER
  9. BACLOFEN. [Suspect]
     Active Substance: BACLOFEN
     Dosage: 25 MG, TID
     Route: 065
     Dates: start: 201003
  10. DIAZEPAM. [Suspect]
     Active Substance: DIAZEPAM
     Indication: PAIN
     Dosage: 5 UG, QD
     Route: 065
     Dates: start: 200709
  11. GABAPENTIN. [Suspect]
     Active Substance: GABAPENTIN
     Indication: MENTAL DISORDER
     Dosage: 300 MG, UNK
     Route: 065
     Dates: start: 200904
  12. TRAMADOL+PARACETAMOL [Suspect]
     Active Substance: ACETAMINOPHEN\TRAMADOL
     Dosage: 2 DF, TID (TRAMADOL 37.5MG/PARACETAMOL 325MG)
     Route: 065
     Dates: start: 200805
  13. BUPRENORPHINE. [Suspect]
     Active Substance: BUPRENORPHINE
     Indication: BRADYPHRENIA
  14. NEUROBION FORTE [Suspect]
     Active Substance: CYANOCOBALAMIN\PYRIDOXINE HYDROCHLORIDE\THIAMINE DISULFIDE
     Indication: ASTHENIA
     Dosage: UNK
     Route: 065
     Dates: start: 200805
  15. BACLOFEN. [Suspect]
     Active Substance: BACLOFEN
     Dosage: 25 MG, TID
     Route: 065
     Dates: start: 200805
  16. OXYCODONE HYDROCHLORIDE. [Suspect]
     Active Substance: OXYCODONE HYDROCHLORIDE
     Indication: PAIN
     Dosage: 10 MG, TID
     Route: 065
     Dates: start: 200904
  17. BUPRENORPHINE. [Suspect]
     Active Substance: BUPRENORPHINE
     Indication: BRADYPHRENIA
     Dosage: 70 UG/72 H, UNK
     Route: 065
     Dates: start: 200904
  18. RANITIDINE. [Suspect]
     Active Substance: RANITIDINE
     Indication: PRODUCT USED FOR UNKNOWN INDICATION
     Dosage: UNK
     Route: 065
  19. NEUROBION FORTE [Suspect]
     Active Substance: CYANOCOBALAMIN\PYRIDOXINE HYDROCHLORIDE\THIAMINE DISULFIDE
     Indication: PAIN
  20. GINKGO BILOBA [Suspect]
     Active Substance: GINKGO
     Indication: RASH
  21. ALPRAZOLAM. [Concomitant]
     Active Substance: ALPRAZOLAM
     Indication: PERSISTENT DEPRESSIVE DISORDER
     Dosage: UNK
     Route: 065
     Dates: start: 200805
  22. CARBAMAZEPINE. [Suspect]
     Active Substance: CARBAMAZEPINE
     Indication: PAIN
     Dosage: 200 MG, TID
     Route: 065
     Dates: start: 200709
  23. BACLOFEN. [Suspect]
     Active Substance: BACLOFEN
     Dosage: 25 MG, TID
     Route: 065
     Dates: start: 200904
  24. FENTANYL. [Suspect]
     Active Substance: FENTANYL
     Dosage: 100 MG, UNK
     Route: 062
  25. TRAMADOL+PARACETAMOL [Suspect]
     Active Substance: ACETAMINOPHEN\TRAMADOL
     Dosage: 2 DF, TID (TRAMADOL 37.5MG/PARACETAMOL 325MG)
     Route: 065
     Dates: start: 200904
  26. OXYCODONE HYDROCHLORIDE. [Suspect]
     Active Substance: OXYCODONE HYDROCHLORIDE
     Dosage: 10 MG, PP
     Route: 065
     Dates: start: 201003
  27. IBUPROFEN. [Suspect]
     Active Substance: IBUPROFEN
     Indication: PAIN
     Dosage: 400 MG, UNK
     Route: 065
  28. LEVOTHYROXINE. [Suspect]
     Active Substance: LEVOTHYROXINE
     Indication: QUADRIPARESIS
     Dosage: 50 UG, UNK
     Route: 065
  29. BACLOFEN. [Suspect]
     Active Substance: BACLOFEN
     Indication: PAIN
     Dosage: 10 MG, TID
     Route: 065
     Dates: start: 200709
  30. PREGABALIN. [Suspect]
     Active Substance: PREGABALIN
     Indication: PAIN
  31. GABAPENTIN. [Suspect]
     Active Substance: GABAPENTIN
     Dosage: 900 MG, TID
     Route: 065
  32. TRAMADOL+PARACETAMOL [Suspect]
     Active Substance: ACETAMINOPHEN\TRAMADOL
     Dosage: PP
     Route: 065
     Dates: start: 201003
  33. PIROXICAM. [Suspect]
     Active Substance: PIROXICAM
     Indication: MUSCULOSKELETAL STIFFNESS
     Dosage: 20 MG, UNK
     Route: 065
     Dates: start: 200709
  34. LEVOTHYROXINE. [Suspect]
     Active Substance: LEVOTHYROXINE
     Indication: PAIN
     Dosage: 75 UG, UNK
     Route: 065
  35. GINKGO BILOBA [Suspect]
     Active Substance: GINKGO
     Indication: RASH
     Dosage: 120 MG, UNK
     Route: 065
     Dates: start: 201003
  36. TRAMADOL. [Concomitant]
     Active Substance: TRAMADOL
     Indication: PAIN
     Dosage: 3 X 37.5 MG
     Route: 065
  37. FENTANYL. [Suspect]
     Active Substance: FENTANYL
     Indication: PAIN
     Dosage: 100 UG/72 H, UNK
     Route: 062
     Dates: start: 201003
  38. PREGABALIN. [Suspect]
     Active Substance: PREGABALIN
     Indication: PAIN
     Dosage: 300 MG, BID
     Route: 065
     Dates: start: 201003
  39. OXYCODONE HYDROCHLORIDE. [Suspect]
     Active Substance: OXYCODONE HYDROCHLORIDE
     Dosage: 13 MG, UNK
     Route: 065
  40. PANTOPRAZOLE SODIUM. [Suspect]
     Active Substance: PANTOPRAZOLE SODIUM
     Indication: PRODUCT USED FOR UNKNOWN INDICATION
     Dosage: 20 MG, UNK
     Route: 065
     Dates: start: 200904
  41. SERTRALINE [Suspect]
     Active Substance: SERTRALINE HYDROCHLORIDE
     Indication: HEADACHE
     Dosage: 50 MG, QD
     Route: 065
     Dates: start: 200805
  42. GINKGO BILOBA [Suspect]
     Active Substance: GINKGO
     Indication: PAIN

REACTIONS (35)
  - Depression [Unknown]
  - Cognitive disorder [Unknown]
  - Dizziness [Unknown]
  - Vomiting [Unknown]
  - Condition aggravated [Unknown]
  - Headache [Unknown]
  - Persistent depressive disorder [Unknown]
  - Pruritus [Unknown]
  - Drug interaction [Unknown]
  - Confusional state [Unknown]
  - Ataxia [Unknown]
  - Quadriparesis [Unknown]
  - Sedation [Unknown]
  - Sensory disturbance [Unknown]
  - Syncope [Unknown]
  - Asthenia [Unknown]
  - Psychomotor skills impaired [Unknown]
  - Fatigue [Unknown]
  - Erythema [Unknown]
  - Drug ineffective [Unknown]
  - Anxiety [Unknown]
  - Loss of consciousness [Unknown]
  - Constipation [Unknown]
  - Diplopia [Unknown]
  - Schizophrenia [Unknown]
  - Nausea [Unknown]
  - Musculoskeletal stiffness [Unknown]
  - Feeling abnormal [Unknown]
  - Neurosis [Unknown]
  - Disturbance in attention [Unknown]
  - Oedema [Unknown]
  - Gastrointestinal motility disorder [Unknown]
  - Pain [Unknown]
  - Euphoric mood [Unknown]
  - Conversion disorder [Unknown]
